FAERS Safety Report 9508252 (Version 1)
Quarter: 2013Q3

REPORT INFORMATION
  Report Type: Spontaneous
  Country: US (occurrence: US)
  Receive Date: 20130909
  Receipt Date: 20130909
  Transmission Date: 20140515
  Serious: No
  Sender: FDA-Public Use
  Company Number: US-PFIZER INC-2013255440

PATIENT
  Age: 7 Year
  Sex: Female
  Weight: 16.33 kg

DRUGS (1)
  1. CHILDREN^S MOTRIN [Suspect]
     Indication: PYREXIA
     Dosage: 5 ML, ONCE EVERY 8 HOURS
     Route: 048
     Dates: start: 20130618

REACTIONS (1)
  - Drug ineffective [Unknown]
